FAERS Safety Report 25487289 (Version 3)
Quarter: 2025Q3

REPORT INFORMATION
  Report Type: Spontaneous
  Country: CA (occurrence: CA)
  Receive Date: 20250627
  Receipt Date: 20250801
  Transmission Date: 20251021
  Serious: Yes (Death, Life-Threatening, Hospitalization, Disabling, Congenital Anomaly, Other)
  Sender: Haleon PLC
  Company Number: CA-HALEON-2249280

PATIENT
  Age: 40 Year
  Sex: Female
  Weight: 96 kg

DRUGS (82)
  1. DICLOFENAC [Suspect]
     Active Substance: DICLOFENAC
     Indication: Product used for unknown indication
  2. DICLOFENAC [Suspect]
     Active Substance: DICLOFENAC
  3. DICLOFENAC [Suspect]
     Active Substance: DICLOFENAC
  4. DICLOFENAC [Suspect]
     Active Substance: DICLOFENAC
  5. CANDESARTAN [Suspect]
     Active Substance: CANDESARTAN
     Indication: Migraine
     Route: 048
  6. CIPROFLOXACIN [Concomitant]
     Active Substance: CIPROFLOXACIN
     Indication: Product used for unknown indication
  7. CIPROFLOXACIN [Concomitant]
     Active Substance: CIPROFLOXACIN
  8. METHOTREXATE [Suspect]
     Active Substance: METHOTREXATE
     Indication: Rheumatoid arthritis
     Route: 013
  9. METHOTREXATE [Suspect]
     Active Substance: METHOTREXATE
     Route: 048
  10. METHOTREXATE [Suspect]
     Active Substance: METHOTREXATE
     Route: 048
  11. METHOTREXATE [Suspect]
     Active Substance: METHOTREXATE
  12. METHOTREXATE [Suspect]
     Active Substance: METHOTREXATE
     Route: 048
  13. METHOTREXATE [Suspect]
     Active Substance: METHOTREXATE
     Route: 048
  14. METHOTREXATE [Suspect]
     Active Substance: METHOTREXATE
  15. METHOTREXATE [Suspect]
     Active Substance: METHOTREXATE
     Route: 013
  16. METHOTREXATE [Suspect]
     Active Substance: METHOTREXATE
     Route: 048
  17. METHOTREXATE [Suspect]
     Active Substance: METHOTREXATE
     Route: 048
  18. METHOTREXATE [Suspect]
     Active Substance: METHOTREXATE
  19. METHOTREXATE [Suspect]
     Active Substance: METHOTREXATE
     Route: 048
  20. METHOTREXATE [Suspect]
     Active Substance: METHOTREXATE
     Route: 048
  21. METHOTREXATE [Suspect]
     Active Substance: METHOTREXATE
     Route: 016
  22. METHOTREXATE [Suspect]
     Active Substance: METHOTREXATE
     Route: 048
  23. METHOTREXATE [Suspect]
     Active Substance: METHOTREXATE
  24. METHOTREXATE [Suspect]
     Active Substance: METHOTREXATE
     Route: 048
  25. METHOTREXATE [Suspect]
     Active Substance: METHOTREXATE
     Route: 058
  26. METHOTREXATE [Suspect]
     Active Substance: METHOTREXATE
     Route: 013
  27. MONTELUKAST SODIUM [Concomitant]
     Active Substance: MONTELUKAST SODIUM
     Indication: Product used for unknown indication
     Route: 048
  28. MONTELUKAST SODIUM [Concomitant]
     Active Substance: MONTELUKAST SODIUM
  29. OMALIZUMAB [Suspect]
     Active Substance: OMALIZUMAB
     Indication: Chronic spontaneous urticaria
  30. OMALIZUMAB [Suspect]
     Active Substance: OMALIZUMAB
     Route: 058
  31. OMALIZUMAB [Suspect]
     Active Substance: OMALIZUMAB
     Route: 058
  32. OMALIZUMAB [Suspect]
     Active Substance: OMALIZUMAB
     Route: 058
  33. OMALIZUMAB [Suspect]
     Active Substance: OMALIZUMAB
     Route: 058
  34. OMALIZUMAB [Suspect]
     Active Substance: OMALIZUMAB
     Route: 058
  35. OMALIZUMAB [Suspect]
     Active Substance: OMALIZUMAB
     Route: 058
  36. OMALIZUMAB [Suspect]
     Active Substance: OMALIZUMAB
     Route: 058
  37. OMALIZUMAB [Suspect]
     Active Substance: OMALIZUMAB
     Route: 058
  38. OMALIZUMAB [Suspect]
     Active Substance: OMALIZUMAB
     Route: 058
  39. OMALIZUMAB [Suspect]
     Active Substance: OMALIZUMAB
     Route: 058
  40. OMALIZUMAB [Suspect]
     Active Substance: OMALIZUMAB
     Route: 058
  41. OMALIZUMAB [Suspect]
     Active Substance: OMALIZUMAB
     Route: 058
  42. OMALIZUMAB [Suspect]
     Active Substance: OMALIZUMAB
     Route: 058
  43. OMALIZUMAB [Suspect]
     Active Substance: OMALIZUMAB
     Route: 058
  44. OMALIZUMAB [Suspect]
     Active Substance: OMALIZUMAB
     Route: 058
  45. ADALIMUMAB [Suspect]
     Active Substance: ADALIMUMAB
     Indication: Rheumatoid arthritis
     Route: 058
  46. ADALIMUMAB [Suspect]
     Active Substance: ADALIMUMAB
     Route: 058
  47. AIMOVIG [Suspect]
     Active Substance: ERENUMAB-AOOE
     Indication: Migraine
  48. COSENTYX [Suspect]
     Active Substance: SECUKINUMAB
     Indication: Rheumatoid arthritis
  49. COSENTYX [Suspect]
     Active Substance: SECUKINUMAB
     Indication: Psoriatic arthropathy
  50. CYCLOBENZAPRINE HYDROCHLORIDE [Concomitant]
     Active Substance: CYCLOBENZAPRINE HYDROCHLORIDE
     Indication: Product used for unknown indication
  51. EBASTINE [Concomitant]
     Active Substance: EBASTINE
     Indication: Product used for unknown indication
     Route: 048
  52. ERELZI [Suspect]
     Active Substance: ETANERCEPT-SZZS
     Indication: Rheumatoid arthritis
  53. ERELZI [Suspect]
     Active Substance: ETANERCEPT-SZZS
  54. LEFLUNOMIDE [Suspect]
     Active Substance: LEFLUNOMIDE
     Route: 048
  55. LEFLUNOMIDE [Suspect]
     Active Substance: LEFLUNOMIDE
     Route: 048
  56. LEFLUNOMIDE [Suspect]
     Active Substance: LEFLUNOMIDE
     Route: 048
  57. LEFLUNOMIDE [Suspect]
     Active Substance: LEFLUNOMIDE
     Route: 048
  58. LEFLUNOMIDE [Suspect]
     Active Substance: LEFLUNOMIDE
     Route: 048
  59. NEURONTIN [Concomitant]
     Active Substance: GABAPENTIN
     Indication: Product used for unknown indication
  60. OXYCODONE [Suspect]
     Active Substance: OXYCODONE
     Indication: Product used for unknown indication
  61. RITUXIMAB [Suspect]
     Active Substance: RITUXIMAB
     Indication: Rheumatoid arthritis
  62. RITUXIMAB [Suspect]
     Active Substance: RITUXIMAB
  63. RITUXIMAB [Suspect]
     Active Substance: RITUXIMAB
     Route: 016
  64. RITUXIMAB [Suspect]
     Active Substance: RITUXIMAB
     Dosage: THERAPY DURATION: 5.0 MONTHS
  65. RITUXIMAB [Suspect]
     Active Substance: RITUXIMAB
     Route: 016
  66. RITUXIMAB [Suspect]
     Active Substance: RITUXIMAB
     Route: 016
  67. RITUXIMAB [Suspect]
     Active Substance: RITUXIMAB
  68. RITUXIMAB [Suspect]
     Active Substance: RITUXIMAB
  69. RITUXIMAB [Suspect]
     Active Substance: RITUXIMAB
  70. RITUXIMAB [Suspect]
     Active Substance: RITUXIMAB
  71. RITUXIMAB [Suspect]
     Active Substance: RITUXIMAB
     Route: 058
  72. RITUXIMAB [Suspect]
     Active Substance: RITUXIMAB
     Route: 058
  73. RITUXIMAB [Suspect]
     Active Substance: RITUXIMAB
     Route: 058
  74. RITUXIMAB [Suspect]
     Active Substance: RITUXIMAB
  75. RITUXIMAB [Suspect]
     Active Substance: RITUXIMAB
  76. VITAMIN D3 [Suspect]
     Active Substance: CHOLECALCIFEROL
     Indication: Product used for unknown indication
  77. PHENYLEPHRINE HYDROCHLORIDE [Suspect]
     Active Substance: PHENYLEPHRINE HYDROCHLORIDE
     Indication: Rheumatoid arthritis
  78. SYNTHROID [Concomitant]
     Active Substance: LEVOTHYROXINE SODIUM
     Indication: Product used for unknown indication
  79. SYNTHROID [Concomitant]
     Active Substance: LEVOTHYROXINE SODIUM
  80. TOPIRAMATE [Suspect]
     Active Substance: TOPIRAMATE
     Indication: Migraine
  81. TOPIRAMATE [Suspect]
     Active Substance: TOPIRAMATE
  82. TOPIRAMATE [Suspect]
     Active Substance: TOPIRAMATE

REACTIONS (57)
  - Suicidal ideation [Fatal]
  - Pruritus [Fatal]
  - Headache [Fatal]
  - Somnolence [Fatal]
  - Abdominal distension [Fatal]
  - Neck pain [Fatal]
  - Hepatitis [Fatal]
  - Dyspepsia [Fatal]
  - Muscular weakness [Fatal]
  - Back injury [Fatal]
  - Nail disorder [Fatal]
  - Coeliac disease [Fatal]
  - Mobility decreased [Fatal]
  - Derealisation [Fatal]
  - Wheezing [Fatal]
  - Depressed mood [Fatal]
  - Peripheral coldness [Fatal]
  - Adverse reaction [Fatal]
  - Gait inability [Fatal]
  - Condition aggravated [Fatal]
  - Temperature intolerance [Fatal]
  - Diarrhoea [Fatal]
  - Decreased appetite [Fatal]
  - Urticaria [Fatal]
  - Product label confusion [Fatal]
  - Malaise [Fatal]
  - Insomnia [Fatal]
  - Respiratory tract congestion [Fatal]
  - Heart rate increased [Fatal]
  - Weight increased [Fatal]
  - Blister [Fatal]
  - Burning sensation [Fatal]
  - Feeling abnormal [Fatal]
  - Asthenia [Fatal]
  - Weight decreased [Fatal]
  - Gastrooesophageal reflux disease [Fatal]
  - Intentional product use issue [Fatal]
  - Hypoaesthesia [Fatal]
  - Wound infection [Fatal]
  - Fatigue [Fatal]
  - Grip strength decreased [Fatal]
  - Alopecia [Fatal]
  - Sleep disorder [Fatal]
  - Bursitis [Fatal]
  - Musculoskeletal stiffness [Fatal]
  - Pain in extremity [Fatal]
  - Nausea [Fatal]
  - Erythema [Fatal]
  - Fall [Fatal]
  - Off label use [Fatal]
  - Folliculitis [Fatal]
  - Gastrointestinal disorder [Fatal]
  - Finger deformity [Fatal]
  - Liver function test increased [Fatal]
  - Osteoarthritis [Fatal]
  - Injury [Fatal]
  - Pneumonia [Fatal]
